FAERS Safety Report 12818025 (Version 2)
Quarter: 2016Q4

REPORT INFORMATION
  Report Type: Spontaneous
  Country: TW (occurrence: TW)
  Receive Date: 20161006
  Receipt Date: 20161102
  Transmission Date: 20170207
  Serious: Yes (Hospitalization)
  Sender: FDA-Public Use
  Company Number: TW-AMGEN-TWNSP2016135056

PATIENT
  Age: 59 Year
  Sex: Male

DRUGS (2)
  1. DEPYRETIN [Concomitant]
     Active Substance: ACETAMINOPHEN
     Dosage: 1 DF, 3X/DAY AFTER MEALS (PC)
     Route: 048
  2. ENBREL [Suspect]
     Active Substance: ETANERCEPT
     Indication: PSORIATIC ARTHROPATHY
     Dosage: 50 MG, QW
     Route: 058
     Dates: start: 20141211

REACTIONS (2)
  - Pleural effusion [Not Recovered/Not Resolved]
  - Tuberculosis [Not Recovered/Not Resolved]
